FAERS Safety Report 18217272 (Version 4)
Quarter: 2020Q4

REPORT INFORMATION
  Report Type: Report from Study
  Country: US (occurrence: US)
  Receive Date: 20200901
  Receipt Date: 20201022
  Transmission Date: 20210113
  Serious: Yes (Hospitalization, Other)
  Sender: FDA-Public Use
  Company Number: US-PFIZER INC-2020335789

PATIENT
  Age: 66 Year
  Sex: Female
  Weight: 99 kg

DRUGS (38)
  1. XARELTO [Suspect]
     Active Substance: RIVAROXABAN
     Indication: PULMONARY EMBOLISM
     Dosage: 20 MG, 1X/DAY
     Route: 048
     Dates: start: 20180129
  2. ALBUTEROL SULFATE. [Concomitant]
     Active Substance: ALBUTEROL SULFATE
     Dosage: UNK
  3. CETIRIZINE [Concomitant]
     Active Substance: CETIRIZINE HYDROCHLORIDE
     Dosage: UNK
  4. ELIQUIS [Concomitant]
     Active Substance: APIXABAN
     Dosage: 5 MG, 2X/DAY
  5. ORENITRAM [Suspect]
     Active Substance: TREPROSTINIL
     Indication: PULMONARY ARTERIAL HYPERTENSION
     Dosage: 0.125 MG
     Route: 048
     Dates: start: 20200805
  6. ADEMPAS [Concomitant]
     Active Substance: RIOCIGUAT
     Dosage: UNK
  7. DOXYCYCLINE. [Concomitant]
     Active Substance: DOXYCYCLINE
     Dosage: UNK
  8. FLONASE [Concomitant]
     Active Substance: FLUTICASONE PROPIONATE
     Dosage: UNK
  9. MAPAP [Concomitant]
     Active Substance: ACETAMINOPHEN
     Dosage: UNK
  10. ORENITRAM [Suspect]
     Active Substance: TREPROSTINIL
     Indication: PULMONARY HYPERTENSION
     Dosage: 0.25 MG, 2X/DAY
     Route: 048
  11. ORENITRAM [Suspect]
     Active Substance: TREPROSTINIL
     Dosage: UNK
     Route: 048
  12. BENAZEPRIL [Concomitant]
     Active Substance: BENAZEPRIL HYDROCHLORIDE
     Dosage: UNK
  13. BUMETANIDE. [Concomitant]
     Active Substance: BUMETANIDE
     Dosage: UNK
  14. DALIRESP [Concomitant]
     Active Substance: ROFLUMILAST
     Dosage: UNK
  15. DOCUSATE SODIUM. [Concomitant]
     Active Substance: DOCUSATE SODIUM
     Dosage: UNK
  16. LEVAQUIN [Concomitant]
     Active Substance: LEVOFLOXACIN
     Dosage: UNK
  17. MONTELUKAST [Concomitant]
     Active Substance: MONTELUKAST SODIUM
     Dosage: UNK
  18. PANTOPRAZOLE [Concomitant]
     Active Substance: PANTOPRAZOLE
     Dosage: UNK
  19. PROAIR HFA [Concomitant]
     Active Substance: ALBUTEROL SULFATE
     Dosage: UNK
  20. CLARITINE [Concomitant]
     Active Substance: LORATADINE
     Dosage: UNK
  21. ORENITRAM [Suspect]
     Active Substance: TREPROSTINIL
     Dosage: 0.125 MG, 2X/DAY
     Route: 048
  22. OPSUMIT [Suspect]
     Active Substance: MACITENTAN
     Indication: PULMONARY HYPERTENSION
     Dosage: UNK
  23. ALPHAGAN P [Concomitant]
     Active Substance: BRIMONIDINE TARTRATE
     Dosage: UNK
  24. ATORVASTATIN [Concomitant]
     Active Substance: ATORVASTATIN
     Dosage: UNK
  25. POTASSIUM CHLORIDE. [Concomitant]
     Active Substance: POTASSIUM CHLORIDE
     Dosage: UNK
  26. ORENITRAM [Suspect]
     Active Substance: TREPROSTINIL
     Dosage: 0.125 MG, 3X/DAY
     Route: 048
     Dates: start: 20200824
  27. OXYGEN. [Concomitant]
     Active Substance: OXYGEN
     Dosage: UNK
  28. GABAPENTIN. [Suspect]
     Active Substance: GABAPENTIN
     Indication: NEUROPATHY PERIPHERAL
     Dosage: UNK
  29. OPSUMIT [Suspect]
     Active Substance: MACITENTAN
     Indication: PULMONARY ARTERIAL HYPERTENSION
     Dosage: 10 MG, 1X/DAY
     Route: 048
     Dates: start: 20191010
  30. DULERA [Concomitant]
     Active Substance: FORMOTEROL FUMARATE DIHYDRATE\MOMETASONE FUROATE
     Dosage: UNK
  31. REVATIO [Concomitant]
     Active Substance: SILDENAFIL CITRATE
     Dosage: UNK
  32. SERTRALINE HYDROCHLORIDE. [Concomitant]
     Active Substance: SERTRALINE HYDROCHLORIDE
     Dosage: UNK
  33. SPIRONOLACTONE. [Concomitant]
     Active Substance: SPIRONOLACTONE
     Dosage: UNK
  34. ORENITRAM [Suspect]
     Active Substance: TREPROSTINIL
     Dosage: UNK
     Route: 048
     Dates: start: 202007
  35. ASPIRIN (E.C.) [Concomitant]
     Active Substance: ASPIRIN
     Dosage: UNK
  36. BUSPIRONE [Concomitant]
     Active Substance: BUSPIRONE HYDROCHLORIDE
     Dosage: UNK
  37. LATANOPROST. [Concomitant]
     Active Substance: LATANOPROST
     Dosage: UNK
  38. LOPERAMIDE [Concomitant]
     Active Substance: LOPERAMIDE
     Dosage: UNK

REACTIONS (36)
  - Pneumonitis [Unknown]
  - Tricuspid valve incompetence [Unknown]
  - Burning sensation [Unknown]
  - Constipation [Unknown]
  - Sleep disorder [Unknown]
  - Oxygen saturation decreased [Unknown]
  - Dizziness [Unknown]
  - Cardiac murmur [Unknown]
  - Right ventricular dilatation [Unknown]
  - Somnolence [Not Recovered/Not Resolved]
  - Musculoskeletal pain [Unknown]
  - Myalgia [Unknown]
  - Palpitations [Unknown]
  - Pneumonia [Recovered/Resolved]
  - Nasal congestion [Not Recovered/Not Resolved]
  - Depressed mood [Unknown]
  - Blood pressure fluctuation [Unknown]
  - Left atrial dilatation [Unknown]
  - Pain in jaw [Not Recovered/Not Resolved]
  - Chest pain [Recovered/Resolved]
  - Right ventricular dysfunction [Unknown]
  - Off label use [Unknown]
  - Product dose omission issue [Recovered/Resolved]
  - Malaise [Recovered/Resolved]
  - Pain [Not Recovered/Not Resolved]
  - Respiration abnormal [Unknown]
  - Memory impairment [Unknown]
  - Chest discomfort [Not Recovered/Not Resolved]
  - Oedema peripheral [Unknown]
  - Emphysema [Unknown]
  - Renal disorder [Unknown]
  - Drug ineffective for unapproved indication [Unknown]
  - Dyspnoea [Not Recovered/Not Resolved]
  - Rhinorrhoea [Not Recovered/Not Resolved]
  - Headache [Unknown]
  - Fatigue [Not Recovered/Not Resolved]

NARRATIVE: CASE EVENT DATE: 2020
